FAERS Safety Report 7211904-9 (Version None)
Quarter: 2011Q1

REPORT INFORMATION
  Report Type: 
  Country: None (occurrence: None)
  Receive Date: 20110106
  Receipt Date: 20101228
  Transmission Date: 20110831
  Serious: No
  Sender: FDA-Public Use
  Company Number: US-BIOGENIDEC-2010BI020869

PATIENT
  Age: 53 Year
  Sex: Female

DRUGS (1)
  1. TYSABRI [Suspect]
     Indication: MULTIPLE SCLEROSIS
     Route: 042
     Dates: start: 20081103

REACTIONS (9)
  - CATHETER SITE PAIN [None]
  - THROMBOSIS IN DEVICE [None]
  - POOR VENOUS ACCESS [None]
  - CENTRAL VENOUS CATHETERISATION [None]
  - DYSPEPSIA [None]
  - OEDEMA PERIPHERAL [None]
  - ABDOMINAL PAIN UPPER [None]
  - INFUSION SITE PRURITUS [None]
  - BACK PAIN [None]
